FAERS Safety Report 6701525-6 (Version None)
Quarter: 2010Q2

REPORT INFORMATION
  Report Type: 
  Country: None (occurrence: None)
  Receive Date: 20100429
  Receipt Date: 20100422
  Transmission Date: 20101027
  Serious: Yes (Death)
  Sender: FDA-Public Use
  Company Number: US-ASTRAZENECA-2010SE18914

PATIENT
  Age: 1948 Day
  Sex: Female
  Weight: 17.6 kg

DRUGS (4)
  1. PROPOFOL [Suspect]
     Indication: DENTAL IMPLANTATION
     Route: 042
     Dates: start: 20091103, end: 20091103
  2. ULTANE [Suspect]
     Indication: DENTAL IMPLANTATION
     Route: 055
     Dates: start: 20091103, end: 20091103
  3. FENTANYL [Concomitant]
     Indication: PREOPERATIVE CARE
     Dates: start: 20091103, end: 20091103
  4. CEFAZOLIN SODIUM [Concomitant]
     Indication: PREOPERATIVE CARE
     Dates: start: 20091103, end: 20091103

REACTIONS (1)
  - HYPERTHERMIA MALIGNANT [None]
